FAERS Safety Report 8347817-9 (Version None)
Quarter: 2012Q2

REPORT INFORMATION
  Report Type: 
  Country: None (occurrence: None)
  Receive Date: 20120509
  Receipt Date: 20120501
  Transmission Date: 20120825
  Serious: Yes (Congenital Anomaly)
  Sender: FDA-Public Use
  Company Number: US-GLAXOSMITHKLINE-A0976808A

PATIENT
  Sex: Male
  Weight: 3.8 kg

DRUGS (2)
  1. PAXIL [Suspect]
     Indication: DEPRESSION
     Dosage: 40MG AT NIGHT
     Route: 064
  2. PAXIL CR [Suspect]
     Indication: DEPRESSION
     Dosage: 50MG AT NIGHT
     Route: 064

REACTIONS (2)
  - FOETAL EXPOSURE DURING PREGNANCY [None]
  - CARDIAC MURMUR [None]
